FAERS Safety Report 17103368 (Version 1)
Quarter: 2019Q4

REPORT INFORMATION
  Report Type: Spontaneous
  Country: US (occurrence: US)
  Receive Date: 20191202
  Receipt Date: 20191202
  Transmission Date: 20200122
  Serious: Yes (Hospitalization)
  Sender: FDA-Public Use
  Company Number: None

PATIENT
  Age: 51 Year
  Sex: Male

DRUGS (8)
  1. OXYCODONE TAB 5 MG [Concomitant]
  2. ONDANSETRON TAB 4 MG [Concomitant]
  3. OMEPRAZOLE CAP 40 MG [Concomitant]
  4. HUMIRA [Suspect]
     Active Substance: ADALIMUMAB
     Indication: ANKYLOSING SPONDYLITIS
     Dosage: ?          OTHER FREQUENCY:EVERY 7 DAYS;?
     Route: 058
     Dates: start: 20160411
  5. OMEGA 3 CAP 1200 MG [Concomitant]
  6. B-COMPLEX TAB [Concomitant]
  7. CETIRIZINE TAB 5 MG [Concomitant]
  8. CRUSH VIT C LOZ 60 MG [Concomitant]

REACTIONS (2)
  - Therapy cessation [None]
  - Knee operation [None]
